FAERS Safety Report 5917499-1 (Version None)
Quarter: 2008Q4

REPORT INFORMATION
  Report Type: 
  Country: None (occurrence: None)
  Receive Date: 20081010
  Receipt Date: 20081010
  Transmission Date: 20090506
  Serious: Yes (Other)
  Sender: FDA-Public Use
  Company Number: None

PATIENT
  Age: 30 Year
  Sex: Female
  Weight: 74.3899 kg

DRUGS (1)
  1. ORTHO EVRA [Suspect]
     Indication: CONTRACEPTION
     Dosage: 6 MG NORELGESTROMIN/.75MG 1 PATCH Q WEEK TRANSDERMAL
     Route: 062
     Dates: start: 20080624, end: 20080712

REACTIONS (3)
  - ERYTHEMA [None]
  - SKIN DISCOLOURATION [None]
  - SKIN HYPERPIGMENTATION [None]
